FAERS Safety Report 5097329-3 (Version None)
Quarter: 2006Q3

REPORT INFORMATION
  Report Type: 
  Country: None (occurrence: None)
  Receive Date: 20060906
  Receipt Date: 20060823
  Transmission Date: 20061208
  Serious: Yes (Disabling)
  Sender: FDA-Public Use
  Company Number: JP-JPN-A200603267

PATIENT
  Sex: Female

DRUGS (4)
  1. PAXIL [Suspect]
     Indication: DRUG USE FOR UNKNOWN INDICATION
     Dosage: 20MG PER DAY
     Route: 048
     Dates: start: 20060801
  2. TOLEDOMIN [Concomitant]
     Route: 048
  3. DEPROMEL [Concomitant]
     Dosage: 1U PER DAY
     Route: 048
     Dates: start: 20060801
  4. MEILAX [Concomitant]
     Dosage: 1U PER DAY
     Route: 048
     Dates: start: 20060801

REACTIONS (4)
  - CONFUSIONAL STATE [None]
  - DELIRIUM [None]
  - DYSPHONIA [None]
  - MEMORY IMPAIRMENT [None]
